FAERS Safety Report 17353824 (Version 4)
Quarter: 2020Q1

REPORT INFORMATION
  Report Type: Spontaneous
  Country: US (occurrence: US)
  Receive Date: 20200131
  Receipt Date: 20200316
  Transmission Date: 20200409
  Serious: Yes (Death)
  Sender: FDA-Public Use
  Company Number: US-ROCHE-2537862

PATIENT
  Age: 46 Year
  Sex: Male

DRUGS (1)
  1. ACTIVASE [Suspect]
     Active Substance: ALTEPLASE
     Indication: MYOCARDIAL INFARCTION
     Dosage: ONGOING:NO
     Route: 042
     Dates: start: 20200127

REACTIONS (2)
  - Death [Fatal]
  - Product quality issue [Unknown]

NARRATIVE: CASE EVENT DATE: 20200128
